FAERS Safety Report 8417034-2 (Version None)
Quarter: 2012Q2

REPORT INFORMATION
  Report Type: 
  Country: None (occurrence: None)
  Receive Date: 20120606
  Receipt Date: 20120522
  Transmission Date: 20120825
  Serious: Yes (Death)
  Sender: FDA-Public Use
  Company Number: US-ASTELLAS-2012US005260

PATIENT

DRUGS (6)
  1. TEMOZOLOMIDE [Suspect]
     Dosage: 200 MG/M2, 5 DAY PER 28 DAY CYCLE, AFTER RADIOTHERAPY
     Route: 065
  2. ERLOTINIB HYDROCHLORIDE [Suspect]
     Dosage: 500-600 MG UID/QD FOR PATIENTS ON EIAED'S
     Route: 048
  3. BEVACIZUMAB [Suspect]
     Indication: GLIOBLASTOMA
     Dosage: 10 MG/KG, EVERY 2 WEEKS
  4. RADIATION THERAPY [Suspect]
     Indication: GLIOBLASTOMA
     Dosage: 60 GY
     Route: 065
  5. ERLOTINIB HYDROCHLORIDE [Suspect]
     Indication: GLIOBLASTOMA
     Dosage: 150-200 MG UID/QD
     Route: 048
  6. TEMOZOLOMIDE [Suspect]
     Indication: GLIOBLASTOMA
     Dosage: 75 MG/M2, 5 DAY PER 28 DAY CYCLE
     Route: 065

REACTIONS (2)
  - OFF LABEL USE [None]
  - ASPERGILLOSIS [None]
